FAERS Safety Report 6180827-9 (Version None)
Quarter: 2009Q2

REPORT INFORMATION
  Report Type: 
  Country: None (occurrence: None)
  Receive Date: 20090501
  Receipt Date: 20090227
  Transmission Date: 20091009
  Serious: Yes (Other)
  Sender: FDA-Public Use
  Company Number: USEN-7PNVE4

PATIENT
  Age: 70 Year
  Sex: Female

DRUGS (2)
  1. DURAPREP [Suspect]
     Indication: PREOPERATIVE CARE
     Dosage: 26 ML, TOPICAL; SINGLE APPLICATION
     Route: 061
  2. LOBAN [Concomitant]

REACTIONS (1)
  - THERMAL BURN [None]
